FAERS Safety Report 18084577 (Version 1)
Quarter: 2020Q3

REPORT INFORMATION
  Report Type: Spontaneous
  Country: CN (occurrence: CN)
  Receive Date: 20200729
  Receipt Date: 20200729
  Transmission Date: 20201103
  Serious: Yes (Hospitalization, Other)
  Sender: FDA-Public Use
  Company Number: CN-DRREDDYS-GPV/CHN/20/0125447

PATIENT
  Age: 62 Year
  Sex: Male
  Weight: 64.8 kg

DRUGS (3)
  1. OLANZAPINE. [Suspect]
     Active Substance: OLANZAPINE
     Indication: PSYCHOTIC DISORDER
     Dosage: 20.000000MG TWICE DAILY
     Route: 048
     Dates: start: 20200126, end: 20200609
  2. OLANZAPINE. [Suspect]
     Active Substance: OLANZAPINE
     Dosage: DOSE WAS REDUCED.
     Route: 048
     Dates: start: 20200609, end: 20200612
  3. SODIUM VALPROATE SUSTAINED?RELEASE TABLETS [Concomitant]
     Indication: AFFECT LABILITY
     Dosage: 1.000000MG TABLETS TWICE A DAY
     Route: 048
     Dates: start: 20200126, end: 20200608

REACTIONS (1)
  - Extrapyramidal disorder [Recovering/Resolving]

NARRATIVE: CASE EVENT DATE: 20200608
